FAERS Safety Report 4312757-9 (Version None)
Quarter: 2004Q1

REPORT INFORMATION
  Report Type: 
  Country: None (occurrence: None)
  Receive Date: 20040302
  Receipt Date: 20031031
  Transmission Date: 20041129
  Serious: No
  Sender: FDA-Public Use
  Company Number: WAES 0308USA01564

PATIENT
  Age: 49 Year
  Sex: Male
  Weight: 43.9989 kg

DRUGS (20)
  1. CANCIDAS [Suspect]
     Indication: PNEUMONIA ASPERGILLUS
     Dosage: 70 MG/1X/IV;  35 MG/DAILY/IV;   IV
     Route: 042
     Dates: start: 20030801, end: 20030801
  2. CANCIDAS [Suspect]
     Indication: SYSTEMIC CANDIDA
     Dosage: 70 MG/1X/IV;  35 MG/DAILY/IV;   IV
     Route: 042
     Dates: start: 20030801, end: 20030801
  3. CANCIDAS [Suspect]
     Indication: PNEUMONIA ASPERGILLUS
     Dosage: 70 MG/1X/IV;  35 MG/DAILY/IV;   IV
     Route: 042
     Dates: start: 20030802, end: 20030808
  4. CANCIDAS [Suspect]
     Indication: SYSTEMIC CANDIDA
     Dosage: 70 MG/1X/IV;  35 MG/DAILY/IV;   IV
     Route: 042
     Dates: start: 20030802, end: 20030808
  5. ABELCET [Suspect]
     Indication: CANDIDIASIS
     Dosage: 225 MG/DAILY/IV
     Route: 042
     Dates: start: 20030812
  6. ANZEMET [Concomitant]
  7. ATIVAN [Concomitant]
  8. BENADRYL [Concomitant]
  9. CARAFATE [Concomitant]
  10. LANOXIN [Concomitant]
  11. LEVAQUIN [Concomitant]
  12. EPOGEN [Concomitant]
  13. PROTONIX [Concomitant]
  14. SOLU-CORTEF [Concomitant]
  15. UNASYN (AMPICILLIN SODIUM (+) SU [Concomitant]
  16. AMINO ACIDS (UNSPECIFIED) (+) CA [Concomitant]
  17. DOPAMINE HYDROCHLORIDE [Concomitant]
  18. HEPARIN [Concomitant]
  19. MORPHINE [Concomitant]
  20. VANCOMYCIN HYDROCHLORIDE [Concomitant]

REACTIONS (4)
  - ALANINE AMINOTRANSFERASE INCREASED [None]
  - ASPARTATE AMINOTRANSFERASE INCREASED [None]
  - BLOOD ALKALINE PHOSPHATASE INCREASED [None]
  - BLOOD BILIRUBIN INCREASED [None]
